FAERS Safety Report 6101828-2 (Version None)
Quarter: 2009Q1

REPORT INFORMATION
  Report Type: 
  Country: None (occurrence: None)
  Receive Date: 20090227
  Receipt Date: 20080331
  Transmission Date: 20090719
  Serious: No
  Sender: FDA-Public Use
  Company Number: 257164

PATIENT
  Age: 17 Year
  Sex: Male

DRUGS (1)
  1. NUTROPIN AQ [Suspect]
     Indication: BODY HEIGHT BELOW NORMAL
     Dosage: 2.6 MG, QD, SUBCUTANEOUS
     Route: 058
     Dates: start: 20070327, end: 20080220

REACTIONS (2)
  - HIP DEFORMITY [None]
  - SCOLIOSIS [None]
